FAERS Safety Report 5469819-2 (Version None)
Quarter: 2007Q3

REPORT INFORMATION
  Report Type: 
  Country: None (occurrence: None)
  Receive Date: 20070927
  Receipt Date: 20070621
  Transmission Date: 20080115
  Serious: Yes (Other)
  Sender: FDA-Public Use
  Company Number: US-BRISTOL-MYERS SQUIBB COMPANY-13754403

PATIENT
  Age: 80 Year
  Sex: Female
  Weight: 70 kg

DRUGS (5)
  1. SPRYCEL [Suspect]
     Indication: CHRONIC MYELOID LEUKAEMIA
     Route: 048
     Dates: start: 20070101
  2. PREVACID [Concomitant]
  3. TYLENOL (CAPLET) [Concomitant]
  4. MIRAPEX [Concomitant]
  5. NORVASC [Concomitant]

REACTIONS (1)
  - PLEURAL EFFUSION [None]
